FAERS Safety Report 6119596-7 (Version None)
Quarter: 2009Q1

REPORT INFORMATION
  Report Type: 
  Country: None (occurrence: None)
  Receive Date: 20090316
  Receipt Date: 20090310
  Transmission Date: 20090719
  Serious: Yes (Hospitalization)
  Sender: FDA-Public Use
  Company Number: US-BIOGENIDEC-2008BI022603

PATIENT
  Age: 51 Year
  Sex: Female

DRUGS (7)
  1. TYSABRI [Suspect]
     Indication: MULTIPLE SCLEROSIS
     Route: 042
     Dates: start: 20070910
  2. CELEXA [Concomitant]
     Indication: DEPRESSION
  3. HYDROCHLOROTHIAZIDE [Concomitant]
     Indication: HYPERTENSION
  4. OMEPRAZOLE [Concomitant]
     Indication: GASTROOESOPHAGEAL REFLUX DISEASE
  5. PERCOCET [Concomitant]
     Indication: PAIN
  6. ALLEGRA D 24 HOUR [Concomitant]
     Indication: ALLERGIC SINUSITIS
  7. ZYRTEC [Concomitant]
     Indication: ALLERGIC SINUSITIS

REACTIONS (3)
  - FALL [None]
  - FIBULA FRACTURE [None]
  - LOSS OF CONTROL OF LEGS [None]
